FAERS Safety Report 15357767 (Version 1)
Quarter: 2018Q4

REPORT INFORMATION
  Report Type: Spontaneous
  Country: DE (occurrence: DE)
  Receive Date: 20180906
  Receipt Date: 20180906
  Transmission Date: 20190204
  Serious: Yes (Death, Congenital Anomaly)
  Sender: FDA-Public Use
  Company Number: DE-ALLERGAN-1842819US

PATIENT
  Age: 0 Year
  Sex: Male

DRUGS (7)
  1. L-THYROXIN 50 [Concomitant]
     Active Substance: LEVOTHYROXINE SODIUM
     Indication: MATERNAL EXPOSURE TIMING UNSPECIFIED
     Dosage: UNK UNK, QD
     Route: 064
     Dates: start: 20171002, end: 20171223
  2. ESCITALOPRAM OXALATE - BP [Suspect]
     Active Substance: ESCITALOPRAM OXALATE
     Indication: MATERNAL EXPOSURE TIMING UNSPECIFIED
     Dosage: 20 MG, QD
     Route: 064
     Dates: start: 20171103, end: 20171223
  3. PAROXETIN [Suspect]
     Active Substance: PAROXETINE HYDROCHLORIDE
     Indication: MATERNAL EXPOSURE TIMING UNSPECIFIED
     Dosage: 30 MG, QD
     Route: 064
     Dates: start: 20171002, end: 20171103
  4. NEPRESOL (HYDRALAZINE HYDROCHLORIDE) [Suspect]
     Active Substance: HYDRALAZINE HYDROCHLORIDE
     Indication: MATERNAL EXPOSURE TIMING UNSPECIFIED
     Dosage: 25 MG, QD
     Route: 064
     Dates: start: 20171103, end: 20171223
  5. CYTOTEC [Concomitant]
     Active Substance: MISOPROSTOL
     Indication: MATERNAL EXPOSURE TIMING UNSPECIFIED
     Route: 064
     Dates: start: 20171218, end: 20171223
  6. CANDESARTAN. [Suspect]
     Active Substance: CANDESARTAN
     Indication: MATERNAL EXPOSURE TIMING UNSPECIFIED
     Dosage: 16 MG, QD
     Route: 064
     Dates: start: 20171002, end: 20171103
  7. LEVETIRACETAM. [Suspect]
     Active Substance: LEVETIRACETAM
     Indication: MATERNAL EXPOSURE TIMING UNSPECIFIED
     Dosage: 1500 MG, QD
     Route: 064
     Dates: start: 20171002, end: 20171223

REACTIONS (2)
  - Anencephaly [Fatal]
  - Foetal exposure during pregnancy [Unknown]
